FAERS Safety Report 12756591 (Version 3)
Quarter: 2017Q1

REPORT INFORMATION
  Report Type: Spontaneous
  Country: DE (occurrence: DE)
  Receive Date: 20160917
  Receipt Date: 20170110
  Transmission Date: 20170428
  Serious: Yes (Hospitalization, Other)
  Sender: FDA-Public Use
  Company Number: DE-BAXTER-2016BAX046908

PATIENT
  Age: 59 Year
  Sex: Male

DRUGS (9)
  1. METHIONIN [Concomitant]
     Active Substance: METHIONINE
     Indication: DRUG THERAPY
     Dosage: 1-1-1
     Route: 065
  2. CLEXANE [Concomitant]
     Active Substance: ENOXAPARIN SODIUM
     Indication: DRUG THERAPY
     Dosage: 0-0-1
     Route: 058
  3. IBUPROFEN. [Concomitant]
     Active Substance: IBUPROFEN
     Indication: DRUG THERAPY
     Dosage: 1-1-1
     Route: 065
  4. ARTISS [Suspect]
     Active Substance: FIBRINOGEN HUMAN\THROMBIN HUMAN
     Indication: PRODUCT USED FOR UNKNOWN INDICATION
     Dosage: SPRAYED
     Route: 061
     Dates: start: 20160531
  5. NIFURETTEN [Concomitant]
     Indication: DRUG THERAPY
     Dosage: 0-0-1
     Route: 065
  6. BISOPROLOL [Concomitant]
     Active Substance: BISOPROLOL
     Indication: DRUG THERAPY
     Dosage: 1-0-1
     Route: 065
  7. PANTOZOL [Concomitant]
     Active Substance: PANTOPRAZOLE SODIUM
     Indication: DRUG THERAPY
     Dosage: 1-0-0
     Route: 065
  8. FERROSANOL [Concomitant]
     Active Substance: FERROUS GLUCONATE
     Indication: DRUG THERAPY
     Dosage: 1-0-1
     Route: 065
  9. CRANBERRY EXTRACTE [Concomitant]
     Indication: DRUG THERAPY
     Route: 065

REACTIONS (4)
  - Product quality issue [Unknown]
  - Wound secretion [Unknown]
  - Adverse drug reaction [Unknown]
  - Impaired healing [Recovered/Resolved]

NARRATIVE: CASE EVENT DATE: 2016
